FAERS Safety Report 18016999 (Version 1)
Quarter: 2020Q3

REPORT INFORMATION
  Report Type: Spontaneous
  Country: FR (occurrence: FR)
  Receive Date: 20200713
  Receipt Date: 20200713
  Transmission Date: 20201103
  Serious: Yes (Hospitalization)
  Sender: FDA-Public Use
  Company Number: NVSC2020FR191818

PATIENT
  Age: 2 Year
  Sex: Female
  Weight: 14 kg

DRUGS (2)
  1. NICARDIPINE AGUETTANT [Suspect]
     Active Substance: NICARDIPINE
     Indication: HYPERTENSION
     Dosage: 125 MG, ONCE/SINGLE (TOTAL) (STRENGTH: 10 MG/10 ML)
     Route: 041
     Dates: start: 20200518
  2. SANDIMMUN [Suspect]
     Active Substance: CYCLOSPORINE
     Indication: PRODUCT USED FOR UNKNOWN INDICATION
     Dosage: NON ADMINISTR?
     Route: 065

REACTIONS (3)
  - Hypotension [Recovered/Resolved]
  - Medication error [Recovered/Resolved]
  - Wrong product administered [Recovered/Resolved]

NARRATIVE: CASE EVENT DATE: 20200518
